FAERS Safety Report 21122484 (Version 2)
Quarter: 2022Q3

REPORT INFORMATION
  Report Type: Spontaneous
  Country: US (occurrence: None)
  Receive Date: 20220723
  Receipt Date: 20220818
  Transmission Date: 20221027
  Serious: Yes (Hospitalization)
  Sender: FDA-Public Use
  Company Number: 2022A254704

PATIENT
  Sex: Male
  Weight: 88.9 kg

DRUGS (2)
  1. PULMICORT FLEXHALER [Suspect]
     Active Substance: BUDESONIDE
     Indication: Wheezing
     Dosage: ONE PUFF TWICE A DAY
     Route: 055
     Dates: start: 202206, end: 202206
  2. PULMICORT FLEXHALER [Suspect]
     Active Substance: BUDESONIDE
     Indication: Bronchitis
     Dosage: ONE PUFF TWICE A DAY
     Route: 055
     Dates: start: 202206, end: 202206

REACTIONS (8)
  - Cardiac failure chronic [Unknown]
  - Chest discomfort [Unknown]
  - Atrial fibrillation [Unknown]
  - Pneumonia [Unknown]
  - Device use issue [Unknown]
  - Device delivery system issue [Unknown]
  - Device malfunction [Unknown]
  - Product use issue [Unknown]
